FAERS Safety Report 6682500-7 (Version None)
Quarter: 2010Q2

REPORT INFORMATION
  Report Type: 
  Country: None (occurrence: None)
  Receive Date: 20100414
  Receipt Date: 20100414
  Transmission Date: 20101027
  Serious: No
  Sender: FDA-Public Use
  Company Number: None

PATIENT
  Sex: Female
  Weight: 91.4 kg

DRUGS (1)
  1. HERCEPTIN [Suspect]
     Dosage: 539 MG
     Dates: end: 20100310

REACTIONS (2)
  - CARDIAC FAILURE CHRONIC [None]
  - DYSPNOEA EXERTIONAL [None]
